FAERS Safety Report 11398411 (Version 1)
Quarter: 2015Q3

REPORT INFORMATION
  Report Type: Spontaneous
  Country: None (occurrence: TW)
  Receive Date: 20150820
  Receipt Date: 20150820
  Transmission Date: 20151125
  Serious: Yes (Other)
  Sender: FDA-Public Use
  Company Number: TW-HOSPIRA-1485313

PATIENT
  Age: 57 Year
  Sex: Female

DRUGS (1)
  1. VANCOMYCIN HYDROCHLORIDE. [Suspect]
     Active Substance: VANCOMYCIN HYDROCHLORIDE
     Indication: BACTERIAL INFECTION
     Route: 042

REACTIONS (3)
  - Leukopenia [Recovered/Resolved]
  - Eosinophilia [Recovered/Resolved]
  - Neutropenia [Recovered/Resolved]
